FAERS Safety Report 6546088-3 (Version None)
Quarter: 2010Q1

REPORT INFORMATION
  Report Type: 
  Country: None (occurrence: None)
  Receive Date: 20100121
  Receipt Date: 20100112
  Transmission Date: 20100710
  Serious: Yes (Other)
  Sender: FDA-Public Use
  Company Number: IN-BAXTER-2010BH000935

PATIENT
  Age: 14 Year
  Sex: Male

DRUGS (2)
  1. SODIUM CHLORIDE 0.9% IN PLASTIC CONTAINER [Suspect]
     Indication: CHEMOTHERAPY
     Route: 042
     Dates: start: 20100111, end: 20100111
  2. OTHER CHEMOTHERAPEUTICS [Concomitant]
     Indication: CHEMOTHERAPY
     Route: 065

REACTIONS (1)
  - CHILLS [None]
